FAERS Safety Report 8760680 (Version 2)
Quarter: 2012Q4

REPORT INFORMATION
  Report Type: 
  Country: MX (occurrence: MX)
  Receive Date: 20120830
  Receipt Date: 20120831
  Transmission Date: 20130627
  Serious: Yes (Hospitalization, Other)
  Sender: FDA-Public Use
  Company Number: MX-SANOFI-AVENTIS-2012SA031244

PATIENT
  Age: 23 Year
  Sex: Female
  Weight: 58 kg

DRUGS (3)
  1. LANTUS [Suspect]
     Indication: TYPE 1 DIABETES MELLITUS
     Route: 058
     Dates: start: 2002
  2. HUMALOG [Suspect]
     Indication: TYPE 1 DIABETES MELLITUS
     Route: 058
     Dates: start: 2002
  3. MINERALS NOS/VITAMIN B NOS [Concomitant]
     Indication: VITAMIN SUPPLEMENTATION
     Route: 048
     Dates: start: 201205

REACTIONS (6)
  - Vaginal haemorrhage [Recovered/Resolved]
  - Rubella in pregnancy [Recovered/Resolved]
  - Abortion spontaneous [Unknown]
  - Hypoglycaemia [Unknown]
  - Hyperglycaemia [Not Recovered/Not Resolved]
  - Exposure during pregnancy [Unknown]
